FAERS Safety Report 5892899-7 (Version None)
Quarter: 2008Q3

REPORT INFORMATION
  Report Type: 
  Country: None (occurrence: None)
  Receive Date: 20080923
  Receipt Date: 20080919
  Transmission Date: 20090109
  Serious: Yes (Hospitalization)
  Sender: FDA-Public Use
  Company Number: US-ABBOTT-08P-163-0477340-00

PATIENT
  Sex: Male
  Weight: 80.812 kg

DRUGS (4)
  1. VICODIN [Suspect]
     Indication: CANCER PAIN
     Dosage: 5/500
     Route: 048
     Dates: start: 20060101, end: 20080822
  2. DEFERASIROX [Suspect]
     Indication: IRON OVERLOAD
     Route: 048
     Dates: start: 20080701, end: 20080822
  3. MULTIPLE UNKNOWN MEDS [Concomitant]
     Indication: DRUG USE FOR UNKNOWN INDICATION
  4. OXYCODONE HCL [Concomitant]
     Indication: PAIN
     Route: 048

REACTIONS (6)
  - ASTHENIA [None]
  - HEPATIC ENZYME INCREASED [None]
  - HEPATITIS [None]
  - JAUNDICE [None]
  - PYREXIA [None]
  - URINARY TRACT INFECTION [None]
